FAERS Safety Report 18856303 (Version 1)
Quarter: 2021Q1

REPORT INFORMATION
  Report Type: Spontaneous
  Country: US (occurrence: US)
  Receive Date: 20210207
  Receipt Date: 20210207
  Transmission Date: 20210420
  Serious: No
  Sender: FDA-Public Use
  Company Number: US-ASTRAZENECA-2021A022947

PATIENT
  Sex: Male
  Weight: 71 kg

DRUGS (1)
  1. LYNPARZA [Suspect]
     Active Substance: OLAPARIB
     Indication: PROSTATE CANCER
     Route: 048

REACTIONS (5)
  - Diarrhoea [Unknown]
  - Intentional product use issue [Unknown]
  - Intentional dose omission [Unknown]
  - Decreased appetite [Unknown]
  - Weight decreased [Unknown]
